FAERS Safety Report 16716542 (Version 1)
Quarter: 2019Q3

REPORT INFORMATION
  Report Type: Spontaneous
  Country: CA (occurrence: CA)
  Receive Date: 20190819
  Receipt Date: 20190819
  Transmission Date: 20191005
  Serious: Yes (Other)
  Sender: FDA-Public Use
  Company Number: CA-PFIZER INC-2019350470

PATIENT
  Age: 17 Year
  Sex: Male
  Weight: 67 kg

DRUGS (13)
  1. CYTARABINE. [Suspect]
     Active Substance: CYTARABINE
     Dosage: UNK
  2. DOXORUBICIN HCL [Suspect]
     Active Substance: DOXORUBICIN HYDROCHLORIDE
     Indication: NON-HODGKIN^S LYMPHOMA
     Dosage: UNK
  3. CYCLOPHOSPHAMIDE. [Suspect]
     Active Substance: CYCLOPHOSPHAMIDE
     Indication: NON-HODGKIN^S LYMPHOMA
     Dosage: UNK
     Route: 042
  4. MERCAPTOPURINE. [Concomitant]
     Active Substance: MERCAPTOPURINE
     Dosage: UNK
  5. L-ASPARAGINASE [Concomitant]
     Active Substance: ASPARAGINASE
     Dosage: UNK
     Route: 030
  6. CYTARABINE. [Suspect]
     Active Substance: CYTARABINE
     Dosage: UNK
     Route: 042
  7. CYTARABINE. [Suspect]
     Active Substance: CYTARABINE
     Dosage: UNK
     Route: 042
  8. CYTARABINE. [Suspect]
     Active Substance: CYTARABINE
     Indication: NON-HODGKIN^S LYMPHOMA
     Dosage: UNK
     Route: 058
  9. DAUNOMYCIN [DAUNORUBICIN] [Suspect]
     Active Substance: DAUNORUBICIN
     Indication: NON-HODGKIN^S LYMPHOMA
     Dosage: UNK
     Route: 042
  10. VINCRISTINE SULFATE. [Concomitant]
     Active Substance: VINCRISTINE SULFATE
     Dosage: UNK
  11. METHOTREXATE. [Concomitant]
     Active Substance: METHOTREXATE
     Dosage: UNK
  12. CYTARABINE. [Suspect]
     Active Substance: CYTARABINE
     Dosage: UNK
     Route: 037
  13. THIOGUANINE [Concomitant]
     Active Substance: THIOGUANINE
     Dosage: UNK

REACTIONS (1)
  - Cardiotoxicity [Not Recovered/Not Resolved]
